FAERS Safety Report 4925426-9 (Version None)
Quarter: 2006Q1

REPORT INFORMATION
  Report Type: 
  Country: None (occurrence: None)
  Receive Date: 20060228
  Receipt Date: 20050210
  Transmission Date: 20060701
  Serious: No
  Sender: FDA-Public Use
  Company Number: US-GLAXOSMITHKLINE-A0546028A

PATIENT

DRUGS (1)
  1. LAMICTAL [Suspect]

REACTIONS (5)
  - BONE PAIN [None]
  - BURNING SENSATION [None]
  - HYPOAESTHESIA [None]
  - NEURALGIA [None]
  - PARAESTHESIA [None]
